FAERS Safety Report 6399613-X (Version None)
Quarter: 2009Q4

REPORT INFORMATION
  Report Type: 
  Country: None (occurrence: None)
  Receive Date: 20091009
  Receipt Date: 20091009
  Transmission Date: 20100525
  Serious: Yes (Other)
  Sender: FDA-Public Use
  Company Number: None

PATIENT
  Age: 53 Year
  Sex: Male

DRUGS (2)
  1. CARBOPLATIN [Suspect]
     Indication: LUNG CANCER METASTATIC
     Dosage: CARBO 400 Q3W IVSS
     Dates: start: 20090430, end: 20090825
  2. CARBOPLATIN [Suspect]
     Indication: METASTASES TO LIVER
     Dosage: CARBO 400 Q3W IVSS
     Dates: start: 20090430, end: 20090825

REACTIONS (2)
  - PRURITUS [None]
  - VOMITING [None]
